FAERS Safety Report 8166985-5 (Version None)
Quarter: 2012Q1

REPORT INFORMATION
  Report Type: 
  Country: None (occurrence: None)
  Receive Date: 20120221
  Receipt Date: 20120214
  Transmission Date: 20120608
  Serious: Yes (Congenital Anomaly)
  Sender: FDA-Public Use
  Company Number: 2012MA002126

PATIENT
  Sex: Female

DRUGS (5)
  1. GABAPENTIN [Suspect]
     Indication: FOETAL EXPOSURE DURING PREGNANCY
     Dosage: 1200 MG;TID;TRPL
     Dates: end: 20110314
  2. METOCLOPRAMIDE [Concomitant]
  3. MORPHINE [Concomitant]
  4. DULOXETIME HYDROCHLORIDE [Concomitant]
  5. TOPIRAMATE [Concomitant]

REACTIONS (4)
  - FOETAL MONITORING ABNORMAL [None]
  - MATERNAL DRUGS AFFECTING FOETUS [None]
  - HAEMANGIOMA OF SKIN [None]
  - CAESAREAN SECTION [None]
